FAERS Safety Report 9904203 (Version 4)
Quarter: 2014Q2

REPORT INFORMATION
  Report Type: Report from Study
  Country: CA (occurrence: CA)
  Receive Date: 20140218
  Receipt Date: 20140422
  Transmission Date: 20141212
  Serious: Yes (Other)
  Sender: FDA-Public Use
  Company Number: CA-ROCHE-1217261

PATIENT
  Age: 38 Year
  Sex: Female
  Weight: 131.5 kg

DRUGS (14)
  1. ACTEMRA [Suspect]
     Indication: RHEUMATOID ARTHRITIS
     Route: 042
     Dates: start: 20130328
  2. ACTEMRA [Suspect]
     Route: 042
  3. AMOXICILLIN [Suspect]
     Indication: PRODUCT USED FOR UNKNOWN INDICATION
     Route: 065
     Dates: start: 201401
  4. ARAVA [Concomitant]
  5. ARTHROTEC [Concomitant]
  6. PENTOXIFYLLINE [Concomitant]
  7. GABAPENTIN [Concomitant]
  8. LASIX [Concomitant]
  9. FOLIC ACID [Concomitant]
  10. FERROUS SULFATE [Concomitant]
  11. TYLENOL ARTHRITIS [Concomitant]
  12. PREDNISONE [Concomitant]
  13. EQUATE COLD + FLU (UNK INGREDIENTS) [Concomitant]
  14. VITAMIN B6 [Concomitant]

REACTIONS (7)
  - Weight increased [Not Recovered/Not Resolved]
  - Insomnia [Not Recovered/Not Resolved]
  - Chalazion [Not Recovered/Not Resolved]
  - Arthritis [Not Recovered/Not Resolved]
  - Vision blurred [Not Recovered/Not Resolved]
  - Furuncle [Recovering/Resolving]
  - Drug effect decreased [Unknown]
